FAERS Safety Report 8512959-1 (Version None)
Quarter: 2012Q3

REPORT INFORMATION
  Report Type: 
  Country: None (occurrence: None)
  Receive Date: 20120716
  Receipt Date: 20120702
  Transmission Date: 20120928
  Serious: No
  Sender: FDA-Public Use
  Company Number: US-ASTRAZENECA-2010SE52021

PATIENT
  Age: 67 Year
  Sex: Female

DRUGS (3)
  1. PULMICORT FLEXHALER [Suspect]
     Dosage: ONE PUFF PER DAY
     Route: 055
  2. PULMICORT FLEXHALER [Suspect]
     Dosage: TWO PUFF PER DAY
     Route: 055
  3. ATACAND [Suspect]
     Route: 048

REACTIONS (4)
  - PAIN [None]
  - INTENTIONAL DRUG MISUSE [None]
  - OFF LABEL USE [None]
  - ABDOMINAL DISCOMFORT [None]
